FAERS Safety Report 8850088 (Version 3)
Quarter: 2014Q2

REPORT INFORMATION
  Report Type: Report from Study
  Country: KR (occurrence: KR)
  Receive Date: 20121019
  Receipt Date: 20131018
  Transmission Date: 20141212
  Serious: Yes (Death)
  Sender: FDA-Public Use
  Company Number: KR-PFIZER INC-2012255598

PATIENT
  Age: 89 Year
  Sex: Male

DRUGS (1)
  1. SOLU-MEDROL [Suspect]
     Indication: PNEUMONIA PNEUMOCOCCAL
     Dosage: 125 MG, 1X/DAY
     Route: 042
     Dates: start: 20100205, end: 20100206

REACTIONS (1)
  - Pneumonia [Fatal]
